FAERS Safety Report 4921131-3 (Version None)
Quarter: 2006Q1

REPORT INFORMATION
  Report Type: 
  Country: None (occurrence: None)
  Receive Date: 20060217
  Receipt Date: 20060203
  Transmission Date: 20060701
  Serious: Yes (Other)
  Sender: FDA-Public Use
  Company Number: TCI2005A04068

PATIENT
  Age: 63 Year
  Sex: Male

DRUGS (6)
  1. ACTOS [Suspect]
     Indication: DIABETES MELLITUS NON-INSULIN-DEPENDENT
     Dosage: 30 MG (30 MG, 1 IN 1 D) PER ORAL
     Route: 048
     Dates: start: 20050617, end: 20050907
  2. GLUFAST TAB. 10 MG (MITIGLINIDE CALCIUM HYDRATE) [Suspect]
     Indication: DIABETES MELLITUS NON-INSULIN-DEPENDENT
     Dosage: 30 MG (10 MG, 3 IN 1 D) PER ORAL
     Route: 048
     Dates: start: 20050617, end: 20050907
  3. DILTIAZEM HYDROCHLORIDE [Concomitant]
  4. FRANDOL (ISOSORBIDE DINTRATE) [Concomitant]
  5. LIPOVAAS (SIMVASTATIN) [Concomitant]
  6. ITORAT(ITRACONAZOLE) [Concomitant]

REACTIONS (14)
  - ALANINE AMINOTRANSFERASE INCREASED [None]
  - ASPARTATE AMINOTRANSFERASE INCREASED [None]
  - BLOOD ALKALINE PHOSPHATASE INCREASED [None]
  - BLOOD BILIRUBIN INCREASED [None]
  - DRUG INTERACTION [None]
  - GAMMA-GLUTAMYLTRANSFERASE INCREASED [None]
  - HEPATIC FUNCTION ABNORMAL [None]
  - LIVER DISORDER [None]
  - MALAISE [None]
  - NASOPHARYNGITIS [None]
  - NAUSEA [None]
  - PYREXIA [None]
  - TINEA INFECTION [None]
  - VIRAL INFECTION [None]
